FAERS Safety Report 14858334 (Version 1)
Quarter: 2018Q2

REPORT INFORMATION
  Report Type: Spontaneous
  Country: US (occurrence: US)
  Receive Date: 20180508
  Receipt Date: 20180508
  Transmission Date: 20180711
  Serious: No
  Sender: FDA-Public Use
  Company Number: US-TEVA-2018-US-889540

PATIENT
  Sex: Female

DRUGS (2)
  1. QVAR [Suspect]
     Active Substance: BECLOMETHASONE DIPROPIONATE
     Route: 065
  2. QVAR REDIHALER [Suspect]
     Active Substance: BECLOMETHASONE DIPROPIONATE
     Route: 065
     Dates: start: 201804

REACTIONS (6)
  - Thermal burn [Unknown]
  - Erythema [Unknown]
  - Dry mouth [Unknown]
  - Lip swelling [Unknown]
  - Hypersensitivity [Unknown]
  - Tongue discomfort [Unknown]
